FAERS Safety Report 6341565-2 (Version None)
Quarter: 2009Q3

REPORT INFORMATION
  Report Type: 
  Country: None (occurrence: None)
  Receive Date: 20090904
  Receipt Date: 20090902
  Transmission Date: 20100115
  Serious: Yes (Life-Threatening, Hospitalization)
  Sender: FDA-Public Use
  Company Number: GB-BRISTOL-MYERS SQUIBB COMPANY-14763882

PATIENT
  Age: 72 Year
  Sex: Male

DRUGS (10)
  1. CISPLATIN [Suspect]
     Indication: NON-SMALL CELL LUNG CANCER
     Dosage: ON THE DAY 1 EVERY 21 DAY
     Route: 042
     Dates: start: 20090710
  2. PEMETREXED DISODIUM [Suspect]
     Indication: NON-SMALL CELL LUNG CANCER
     Dosage: ON THE DAY 1 EVERY 21 DAY
     Route: 042
     Dates: start: 20090710
  3. FOLIC ACID [Concomitant]
     Dates: start: 20090706
  4. VITAMIN B-12 [Concomitant]
     Dates: start: 20090706, end: 20090706
  5. DEXAMETHASONE [Concomitant]
     Dates: start: 20090709, end: 20090711
  6. SEVREDOL [Concomitant]
     Indication: ANALGESIA
     Dates: end: 20090718
  7. PARACETAMOL [Concomitant]
     Indication: ANALGESIA
  8. NULYTELY [Concomitant]
     Indication: CONSTIPATION
  9. VENTOLIN DS [Concomitant]
     Indication: DYSPNOEA
  10. MST [Concomitant]
     Indication: ANALGESIA

REACTIONS (2)
  - DEEP VEIN THROMBOSIS [None]
  - RENAL FAILURE ACUTE [None]
